FAERS Safety Report 4636774-4 (Version None)
Quarter: 2005Q2

REPORT INFORMATION
  Report Type: 
  Country: None (occurrence: None)
  Receive Date: 20050414
  Receipt Date: 20050402
  Transmission Date: 20051028
  Serious: Yes (Hospitalization)
  Sender: FDA-Public Use
  Company Number: 2005053043

PATIENT
  Age: 59 Year
  Sex: Female

DRUGS (3)
  1. SULPERAZONE (SULBACTAM, CEFOPERAZONE) [Suspect]
     Indication: PNEUMONIA
     Dosage: 1.5 GRAM (1.5 GRAM, 1 IN 1 D), INTRAVENOUS
     Route: 042
     Dates: start: 20050314, end: 20050323
  2. MELOXICAM [Concomitant]
  3. AZITHROMYCIN [Concomitant]

REACTIONS (4)
  - BRONCHOPLEURAL FISTULA [None]
  - CONDITION AGGRAVATED [None]
  - PNEUMONIA [None]
  - PNEUMOTHORAX [None]
